FAERS Safety Report 20001843 (Version 1)
Quarter: 2021Q4

REPORT INFORMATION
  Report Type: Other
  Country: US (occurrence: US)
  Receive Date: 20211027
  Receipt Date: 20211027
  Transmission Date: 20220304
  Serious: Yes (Hospitalization)
  Sender: FDA-Public Use
  Company Number: US-ROCHE-2938734

PATIENT
  Sex: Male

DRUGS (5)
  1. ACTEMRA [Suspect]
     Active Substance: TOCILIZUMAB
     Indication: Autoimmune disorder
     Dosage: INJECT 162MG SUBCUTANEOUSLY EVERY WEEK
     Route: 058
  2. ACTEMRA [Suspect]
     Active Substance: TOCILIZUMAB
  3. PREDNISONE [Concomitant]
     Active Substance: PREDNISONE
  4. ACTEMRA [Concomitant]
     Active Substance: TOCILIZUMAB
     Route: 065
  5. LISINOPRIL [Concomitant]
     Active Substance: LISINOPRIL

REACTIONS (2)
  - Therapy cessation [Unknown]
  - Infection [Unknown]
